FAERS Safety Report 5265282-5 (Version None)
Quarter: 2007Q1

REPORT INFORMATION
  Report Type: 
  Country: None (occurrence: None)
  Receive Date: 20061213
  Receipt Date: 20030603
  Transmission Date: 20070707
  Serious: No
  Sender: FDA-Public Use
  Company Number: 2003UW07087

PATIENT
  Age: 82 Year
  Sex: Female

DRUGS (2)
  1. IRESSA [Suspect]
     Dosage: 250 MG DAILY PO
     Route: 048
  2. IRESSA [Suspect]
     Dosage: 250 MG DAILY PO
     Route: 048

REACTIONS (1)
  - DYSPNOEA [None]
